FAERS Safety Report 10061241 (Version 1)
Quarter: 2014Q2

REPORT INFORMATION
  Report Type: Report from Study
  Country: CL (occurrence: CL)
  Receive Date: 20140407
  Receipt Date: 20140407
  Transmission Date: 20141212
  Serious: Yes (Other)
  Sender: FDA-Public Use
  Company Number: CL-ROCHE-1377809

PATIENT
  Age: 55 Year
  Sex: Female
  Weight: 71 kg

DRUGS (5)
  1. XELODA [Suspect]
     Indication: COLON CANCER
     Dosage: 14-DAY-CYCLE
     Route: 048
     Dates: start: 20140214
  2. INSULIN [Concomitant]
     Indication: DIABETES MELLITUS
     Route: 058
     Dates: start: 2009
  3. ENALAPRIL [Concomitant]
     Indication: HYPERTENSION
     Route: 048
     Dates: start: 1993
  4. ATENOLOL [Concomitant]
     Indication: HYPERTENSION
     Route: 048
     Dates: start: 1993
  5. NIFEDIPINE [Concomitant]
     Indication: HYPERTENSION
     Route: 048
     Dates: start: 1993

REACTIONS (1)
  - Hepatic neoplasm [Not Recovered/Not Resolved]
